FAERS Safety Report 15585717 (Version 1)
Quarter: 2018Q4

REPORT INFORMATION
  Report Type: Spontaneous
  Country: CN (occurrence: CN)
  Receive Date: 20181105
  Receipt Date: 20181105
  Transmission Date: 20190205
  Serious: Yes (Other)
  Sender: FDA-Public Use
  Company Number: CN-PFIZER INC-2018445116

PATIENT
  Age: 4 Year
  Sex: Male
  Weight: 13.5 kg

DRUGS (5)
  1. CYTARABINE. [Suspect]
     Active Substance: CYTARABINE
     Indication: NON-HODGKIN^S LYMPHOMA
     Dosage: 24 MG, 1X/DAY
     Dates: start: 20180906, end: 20180906
  2. CYTARABINE. [Suspect]
     Active Substance: CYTARABINE
     Dosage: 24 MG, 1X/DAY
     Dates: start: 20180912, end: 20180912
  3. METHOTREXATE. [Concomitant]
     Active Substance: METHOTREXATE
     Dosage: 12 MG, 1X/DAY
     Dates: start: 20180912, end: 20180912
  4. CYTARABINE. [Suspect]
     Active Substance: CYTARABINE
     Dosage: 80.6 MG, 1X/DAY
     Dates: start: 20180916, end: 20180916
  5. METHOTREXATE. [Concomitant]
     Active Substance: METHOTREXATE
     Indication: NON-HODGKIN^S LYMPHOMA
     Dosage: 12 MG, 1X/DAY
     Dates: start: 20180906, end: 20180906

REACTIONS (2)
  - Mouth ulceration [Recovering/Resolving]
  - Anal abscess [Recovering/Resolving]

NARRATIVE: CASE EVENT DATE: 20180917
